FAERS Safety Report 18931870 (Version 1)
Quarter: 2021Q1

REPORT INFORMATION
  Report Type: Spontaneous
  Country: US (occurrence: US)
  Receive Date: 20210223
  Receipt Date: 20210223
  Transmission Date: 20210420
  Serious: No
  Sender: FDA-Public Use
  Company Number: US-ASTRAZENECA-2021A049316

PATIENT
  Age: 26235 Day
  Sex: Male
  Weight: 90.7 kg

DRUGS (10)
  1. GENERIC CRESTOR [Suspect]
     Active Substance: ROSUVASTATIN CALCIUM
     Indication: PROPHYLAXIS
     Route: 048
     Dates: start: 20210131, end: 20210131
  2. CORTISONE CREAM [Concomitant]
     Active Substance: HYDROCORTISONE
     Indication: RASH
  3. PANTOPRAZOLE [Concomitant]
     Active Substance: PANTOPRAZOLE
  4. ATORVASTATIN [Concomitant]
     Active Substance: ATORVASTATIN
     Dosage: 40 MG
  5. ATORVASTATIN [Concomitant]
     Active Substance: ATORVASTATIN
     Dosage: 80 MG
  6. POLYETHYLENE GLYCOL [Concomitant]
     Active Substance: POLYETHYLENE GLYCOLS
     Indication: HAEMORRHOIDS
  7. MULTI VITAMINS [Concomitant]
     Active Substance: VITAMINS
  8. BRILINTA [Suspect]
     Active Substance: TICAGRELOR
     Indication: MYOCARDIAL INFARCTION
     Route: 048
     Dates: start: 20210104
  9. CIALIS [Concomitant]
     Active Substance: TADALAFIL
  10. ASPIRIN. [Concomitant]
     Active Substance: ASPIRIN
     Dates: start: 20210104

REACTIONS (17)
  - Chest discomfort [Unknown]
  - Dyspnoea [Unknown]
  - Facial pain [Unknown]
  - Skin irritation [Unknown]
  - Dizziness [Unknown]
  - Tremor [Unknown]
  - Speech disorder [Unknown]
  - Rash [Unknown]
  - Depression [Unknown]
  - Mental impairment [Unknown]
  - Gingival bleeding [Unknown]
  - Feeling abnormal [Unknown]
  - Paraesthesia [Unknown]
  - Dysphonia [Unknown]
  - Fatigue [Unknown]
  - Headache [Unknown]
  - Rash erythematous [Unknown]

NARRATIVE: CASE EVENT DATE: 20210131
